FAERS Safety Report 10305463 (Version 1)
Quarter: 2014Q3

REPORT INFORMATION
  Report Type: Spontaneous
  Country: DK (occurrence: DK)
  Receive Date: 20140715
  Receipt Date: 20140715
  Transmission Date: 20150326
  Serious: Yes (Hospitalization)
  Sender: FDA-Public Use
  Company Number: DK-BAYER-2014-102208

PATIENT
  Age: 44 Year
  Sex: Male

DRUGS (3)
  1. MOVICOL [Suspect]
     Active Substance: POLYETHYLENE GLYCOL 3350\POTASSIUM CHLORIDE\SODIUM BICARBONATE\SODIUM CHLORIDE
     Indication: CONSTIPATION
     Dosage: UNK
     Dates: start: 20090216
  2. PRIMCILLIN [Suspect]
     Active Substance: PENICILLIN V POTASSIUM
     Indication: PNEUMONIA
     Dosage: UNK
     Dates: start: 20090223
  3. AVELOX [Suspect]
     Active Substance: MOXIFLOXACIN HYDROCHLORIDE
     Indication: PNEUMONIA
     Dosage: UNK
     Route: 042
     Dates: start: 20090220, end: 20090223

REACTIONS (9)
  - Weight decreased [Unknown]
  - Diarrhoea [Unknown]
  - Dyspepsia [Unknown]
  - Gastrooesophageal reflux disease [None]
  - Peripheral sensorimotor neuropathy [None]
  - Painful defaecation [Unknown]
  - Abdominal pain [Unknown]
  - Bile acid malabsorption [None]
  - Inflammatory bowel disease [None]

NARRATIVE: CASE EVENT DATE: 200902
